FAERS Safety Report 8326168 (Version 3)
Quarter: 2012Q4

REPORT INFORMATION
  Report Type: 
  Country: US (occurrence: US)
  Receive Date: 20120106
  Receipt Date: 20121109
  Transmission Date: 20130627
  Serious: Yes (Other)
  Sender: FDA-Public Use
  Company Number: US-ELI_LILLY_AND_COMPANY-US201110001694

PATIENT
  Sex: Male
  Weight: 62.5 kg

DRUGS (29)
  1. FORTEO [Suspect]
     Indication: OSTEOPOROSIS
     Dosage: 20 ug, qd
     Route: 058
     Dates: start: 20110511
  2. FORTEO [Suspect]
     Dosage: 20 ug, qd
     Route: 058
  3. FORTEO [Suspect]
     Dosage: 20 ug, qd
     Route: 058
  4. FORTEO [Suspect]
     Dosage: 20 ug, qd
     Route: 058
  5. FORTEO [Suspect]
     Dosage: 20 ug, qd
     Route: 058
     Dates: end: 20121015
  6. DIPHENOXYLATE [Concomitant]
     Indication: DIARRHOEA
     Dosage: UNK, prn
  7. CARVEDILOL [Concomitant]
     Dosage: 6.25 mg, bid
  8. HYDROCODONE W/ACETAMINOPHEN [Concomitant]
     Dosage: UNK, qd
  9. OMEPRAZOLE [Concomitant]
     Dosage: 20 mg, qd
  10. ASPIRIN [Concomitant]
     Dosage: 81 mg, qd
  11. CITALOPRAM [Concomitant]
     Dosage: 20 ug, qd
  12. VITAMINS [Concomitant]
     Dosage: UNK, qd
  13. HYDROCODONE [Concomitant]
     Dosage: 500 mg, prn
  14. ENTOCORT EC [Concomitant]
     Dosage: 6 mg, qd
  15. PRILOSEC [Concomitant]
     Dosage: 20 mg, qd
  16. VITAMIN D NOS [Concomitant]
     Dosage: 4000 mg, qd
  17. TYLENOL PM [Concomitant]
     Dosage: UNK, qd
  18. VITAMIN B-12 [Concomitant]
     Dosage: UNK, qd
  19. CALCIUM CITRATE [Concomitant]
     Dosage: 1300 mg, qd
  20. VITAMIN C [Concomitant]
     Dosage: UNK UNK, qd
  21. BUSPIRONE [Concomitant]
  22. NIASPAN [Concomitant]
  23. AMBIEN [Concomitant]
  24. IBUPROFEN [Concomitant]
  25. LOMOTIL [Concomitant]
  26. LACTATED RINGER^S [Concomitant]
     Dosage: 300 ml, UNK
  27. LIDOCAINE [Concomitant]
  28. MARCAINE [Concomitant]
     Dosage: 1 ml, UNK
  29. KENALOG [Concomitant]

REACTIONS (4)
  - Squamous cell carcinoma of skin [Unknown]
  - Anaemia [Not Recovered/Not Resolved]
  - Bone density decreased [Unknown]
  - Drug ineffective [Unknown]
